FAERS Safety Report 23100737 (Version 1)
Quarter: 2023Q4

REPORT INFORMATION
  Report Type: Report from Study
  Country: CN (occurrence: CN)
  Receive Date: 20231024
  Receipt Date: 20231024
  Transmission Date: 20240110
  Serious: Yes (Death)
  Sender: FDA-Public Use
  Company Number: CN-DSJP-DSJ-2023-143418

PATIENT
  Age: 75 Year
  Sex: Female
  Weight: 40 kg

DRUGS (23)
  1. EDOXABAN [Suspect]
     Active Substance: EDOXABAN
     Indication: Atrial fibrillation
     Dosage: 30 MG, QD
     Route: 065
     Dates: start: 20220215, end: 20221213
  2. DABIGATRAN [Suspect]
     Active Substance: DABIGATRAN
     Indication: Atrial fibrillation
     Dosage: 110
     Route: 048
  3. ATORVASTATIN CALCIUM [Concomitant]
     Active Substance: ATORVASTATIN CALCIUM
     Indication: Prophylaxis
     Dosage: 20 MG, DAILY
     Route: 048
     Dates: start: 2020, end: 20221219
  4. METFORMIN HYDROCHLORIDE [Concomitant]
     Active Substance: METFORMIN HYDROCHLORIDE
     Indication: Diabetes mellitus
     Dosage: 500 MG, BID
     Route: 048
     Dates: start: 2015, end: 20221219
  5. METOPROLOL TARTRATE [Concomitant]
     Active Substance: METOPROLOL TARTRATE
     Indication: Atrial fibrillation
     Dosage: 50 MG, BID
     Route: 048
  6. GINKGO BILOBA LEAF EXTRACT [Concomitant]
     Active Substance: GINKGO BILOBA LEAF EXTRACT
     Indication: Prophylaxis
     Dosage: 70 MG, DAILY
     Route: 042
     Dates: start: 20221214, end: 20221219
  7. FAMOTIDINE [Concomitant]
     Active Substance: FAMOTIDINE
     Indication: Gastrointestinal haemorrhage
     Dosage: 20 MG, DAILY
     Route: 042
     Dates: start: 20221215, end: 20221219
  8. FAMOTIDINE [Concomitant]
     Active Substance: FAMOTIDINE
     Indication: Prophylaxis
  9. SHAKUBAQUZUOSHATANNAPIAN [Concomitant]
     Indication: Hypertension
     Dosage: 50 MG, BID
     Route: 048
     Dates: start: 2015, end: 20221219
  10. BISOPROLOL FUMARATE [Concomitant]
     Active Substance: BISOPROLOL FUMARATE
     Indication: Atrial fibrillation
     Dosage: 2.5 MG, DAILY
     Route: 048
  11. FUROSEMIDE [Concomitant]
     Active Substance: FUROSEMIDE
     Indication: Polyuria
     Dosage: 20 MG, BID
     Route: 048
     Dates: start: 20221214, end: 20221219
  12. SPIRONOLACTONE [Concomitant]
     Active Substance: SPIRONOLACTONE
     Indication: Polyuria
     Dosage: 20 MG, BID
     Route: 048
     Dates: start: 20221214, end: 20221219
  13. ISOSORBIDE DINITRATE [Concomitant]
     Active Substance: ISOSORBIDE DINITRATE
     Indication: Coronary artery disease
     Dosage: 30 MG, DAILY
     Route: 042
     Dates: start: 20221214, end: 20221219
  14. RIVAROXABAN [Concomitant]
     Active Substance: RIVAROXABAN
     Indication: Atrial fibrillation
     Dosage: 15 MG, QD
     Route: 048
     Dates: start: 20221216, end: 20221219
  15. ASPIRIN [Concomitant]
     Active Substance: ASPIRIN
     Indication: Atrial fibrillation
     Dosage: UNK UNK, QD
     Route: 065
     Dates: start: 20221216, end: 20221219
  16. ASPIRIN [Concomitant]
     Active Substance: ASPIRIN
     Dosage: 100 MG, DAILY
     Route: 048
  17. FUROSEMIDE [Concomitant]
     Active Substance: FUROSEMIDE
     Indication: Polyuria
     Dosage: 20 MG, SINGLE
     Route: 042
     Dates: start: 20221217, end: 20221219
  18. FUROSEMIDE [Concomitant]
     Active Substance: FUROSEMIDE
     Dosage: 20 MG, SINGLE
     Route: 042
     Dates: start: 20221219, end: 20221219
  19. EPINEPHRINE HYDROCHLORIDE [Concomitant]
     Active Substance: EPINEPHRINE HYDROCHLORIDE
     Indication: Salvage therapy
     Dosage: 1 MG, TID
     Route: 042
     Dates: start: 20221220, end: 20221220
  20. NIKETHAMIDE [Concomitant]
     Active Substance: NIKETHAMIDE
     Indication: Salvage therapy
     Dosage: 1.125 G, SINGLE
     Route: 042
     Dates: start: 20221220, end: 20221220
  21. LOBELINE HYDROCHLORIDE [Concomitant]
     Active Substance: LOBELINE HYDROCHLORIDE
     Indication: Salvage therapy
     Dosage: 9 MG, SINGLE
     Route: 042
     Dates: start: 20221220, end: 20221220
  22. ATROPINE SULFATE [Concomitant]
     Active Substance: ATROPINE SULFATE
     Indication: Salvage therapy
     Dosage: 0.5 MG, TID
     Route: 042
     Dates: start: 20221220, end: 20221220
  23. UNSPECIFIED INGREDIENT [Concomitant]
     Active Substance: UNSPECIFIED INGREDIENT
     Indication: Atrial fibrillation
     Dosage: UNK UNK, BID
     Route: 065
     Dates: start: 2018, end: 20221219

REACTIONS (1)
  - Death [Fatal]

NARRATIVE: CASE EVENT DATE: 20221220
